FAERS Safety Report 15721897 (Version 2)
Quarter: 2018Q4

REPORT INFORMATION
  Report Type: Spontaneous
  Country: US (occurrence: US)
  Receive Date: 20181214
  Receipt Date: 20181226
  Transmission Date: 20190205
  Serious: No
  Sender: FDA-Public Use
  Company Number: US-PFIZER INC-2018514849

PATIENT
  Sex: Male

DRUGS (5)
  1. ATORVASTATIN CALCIUM. [Suspect]
     Active Substance: ATORVASTATIN CALCIUM
     Dosage: UNK
  2. AMLODIPINE BESILATE [Suspect]
     Active Substance: AMLODIPINE BESYLATE
     Dosage: UNK
  3. ELIQUIS [Suspect]
     Active Substance: APIXABAN
     Indication: CARDIAC FAILURE CONGESTIVE
     Dosage: UNK
     Route: 065
  4. RAMIPRIL. [Suspect]
     Active Substance: RAMIPRIL
     Dosage: UNK
  5. ISOSORBIDE. [Suspect]
     Active Substance: ISOSORBIDE
     Dosage: UNK

REACTIONS (10)
  - Dyspnoea [Unknown]
  - Fatigue [Unknown]
  - Nocturia [Unknown]
  - Dizziness [Unknown]
  - Heart rate increased [Unknown]
  - Asthenia [Unknown]
  - Chest pain [Unknown]
  - Exercise tolerance decreased [Unknown]
  - Heart rate irregular [Unknown]
  - Oedema [Unknown]
